FAERS Safety Report 21148104 (Version 1)
Quarter: 2022Q3

REPORT INFORMATION
  Report Type: Spontaneous
  Country: GB (occurrence: GB)
  Receive Date: 20220729
  Receipt Date: 20220729
  Transmission Date: 20221026
  Serious: Yes (Other)
  Sender: FDA-Public Use
  Company Number: GB-CELLTRION INC.-2022GB010984

PATIENT
  Age: 39 Year
  Sex: Female

DRUGS (3)
  1. REMICADE [Suspect]
     Active Substance: INFLIXIMAB
     Indication: Crohn^s disease
     Dosage: 200
     Route: 041
     Dates: start: 20220608
  2. REMICADE [Suspect]
     Active Substance: INFLIXIMAB
     Dosage: 200
     Route: 041
     Dates: start: 20220622
  3. INFLIXIMAB [Suspect]
     Active Substance: INFLIXIMAB
     Indication: Crohn^s disease
     Route: 058
     Dates: start: 20220706

REACTIONS (8)
  - Lip pruritus [Unknown]
  - Lip swelling [Unknown]
  - Malaise [Unknown]
  - Off label use [Unknown]
  - Pain in extremity [Unknown]
  - Feeling hot [Unknown]
  - Abdominal pain upper [Unknown]
  - Infusion related reaction [Unknown]

NARRATIVE: CASE EVENT DATE: 20220622
